FAERS Safety Report 10706357 (Version 1)
Quarter: 2015Q1

REPORT INFORMATION
  Report Type: Spontaneous
  Country: US (occurrence: None)
  Receive Date: 20150109
  Receipt Date: 20150109
  Transmission Date: 20150721
  Serious: No
  Sender: FDA-Public Use
  Company Number: None

PATIENT
  Age: 78 Year
  Sex: Male
  Weight: 74.84 kg

DRUGS (1)
  1. WELCHOL [Suspect]
     Active Substance: COLESEVELAM HYDROCHLORIDE
     Indication: BLOOD CHOLESTEROL INCREASED
     Dates: start: 20141101, end: 20141103

REACTIONS (5)
  - Throat irritation [None]
  - Glossodynia [None]
  - Oral discomfort [None]
  - Gingival pain [None]
  - Ageusia [None]

NARRATIVE: CASE EVENT DATE: 20141101
